FAERS Safety Report 23990410 (Version 1)
Quarter: 2024Q2

REPORT INFORMATION
  Report Type: Spontaneous
  Country: US (occurrence: US)
  Receive Date: 20240619
  Receipt Date: 20240619
  Transmission Date: 20240715
  Serious: No
  Sender: FDA-Public Use
  Company Number: US-C. B. Fleet Co., Inc.-202310-US-003058

PATIENT
  Sex: Female

DRUGS (3)
  1. NIX COMPLETE MAXIMUM STRENGTH LICE ELIMINATION [Suspect]
     Active Substance: PERMETHRIN
     Indication: Lice infestation
     Dosage: 2 TREATMENTS, 9 DAYS APART
     Route: 061
  2. NIX COMPLETE MAXIMUM STRENGTH LICE ELIMINATION [Suspect]
     Active Substance: PERMETHRIN
  3. NIX [Suspect]
     Active Substance: PERMETHRIN
     Indication: Lice infestation
     Dosage: TREATED TWICE, 9 DAYS APART
     Route: 061

REACTIONS (1)
  - Drug ineffective [Not Recovered/Not Resolved]
